FAERS Safety Report 8887507 (Version 1)
Quarter: 2012Q4

REPORT INFORMATION
  Report Type: Spontaneous
  Country: US (occurrence: None)
  Receive Date: 20121031
  Receipt Date: 20121031
  Transmission Date: 20130627
  Serious: Yes (Hospitalization, Other)
  Sender: FDA-Public Use
  Company Number: FR-024024

PATIENT
  Age: 61 Year
  Sex: Male

DRUGS (2)
  1. ALKERAN [Suspect]
     Indication: ACUTE MYELOID LEUKAEMIA
     Dates: start: 20090120, end: 20090120
  2. BUSULFAN [Suspect]
     Indication: ACUTE MYELOID LEUKAEMIA
     Dates: start: 20090115, end: 20090119

REACTIONS (2)
  - Lobar pneumonia [None]
  - Pancytopenia [None]
